FAERS Safety Report 5844814-X (Version None)
Quarter: 2008Q3

REPORT INFORMATION
  Report Type: 
  Country: None (occurrence: None)
  Receive Date: 20080814
  Receipt Date: 20080811
  Transmission Date: 20090109
  Serious: Yes (Hospitalization, Other)
  Sender: FDA-Public Use
  Company Number: US-BRISTOL-MYERS SQUIBB COMPANY-14296768

PATIENT
  Age: 9 Year
  Sex: Female

DRUGS (7)
  1. AMIKACIN SULFATE [Suspect]
     Indication: BLOOD CULTURE POSITIVE
  2. CIPROFLOXACIN [Suspect]
     Route: 042
  3. GATIFLOXACIN [Suspect]
  4. SULFAMETHOXAZOLE AND TRIMETHOPRIM [Suspect]
     Indication: BLOOD CULTURE POSITIVE
     Route: 042
  5. MEROPENEM [Suspect]
     Indication: BLOOD CULTURE POSITIVE
  6. LINEZOLID [Suspect]
     Route: 042
  7. ESOMEPRAZOLE [Suspect]

REACTIONS (5)
  - ELECTROCARDIOGRAM QT PROLONGED [None]
  - METABOLIC ACIDOSIS [None]
  - NEUROPATHY PERIPHERAL [None]
  - PANCREATITIS [None]
  - RENAL IMPAIRMENT [None]
